FAERS Safety Report 15310434 (Version 1)
Quarter: 2018Q3

REPORT INFORMATION
  Report Type: Spontaneous
  Country: US (occurrence: US)
  Receive Date: 20180813
  Receipt Date: 20180813
  Transmission Date: 20181010
  Serious: Yes (Life-Threatening)
  Sender: FDA-Public Use
  Company Number: None

PATIENT
  Age: 53 Year
  Sex: Female
  Weight: 51.75 kg

DRUGS (7)
  1. MULTIVITAMIN [Concomitant]
     Active Substance: VITAMINS
  2. EXCEDRIN EXTRA STRENGTH GELTABS [Suspect]
     Active Substance: ACETAMINOPHEN\ASPIRIN\CAFFEINE
     Indication: HEADACHE
     Dosage: ?          QUANTITY:2 TABLET(S);?
     Route: 048
     Dates: start: 20180707, end: 20180707
  3. BLACK COHOSH [Concomitant]
     Active Substance: BLACK COHOSH
  4. CINNAMON. [Concomitant]
     Active Substance: CINNAMON
  5. CALCIUM [Concomitant]
     Active Substance: CALCIUM
  6. GRAPEFRUIT SEED EXTRACT [Concomitant]
     Active Substance: GRAPEFRUIT SEED EXTRACT
  7. GARLIC. [Concomitant]
     Active Substance: GARLIC

REACTIONS (4)
  - Dyspnoea [None]
  - Shock [None]
  - Foreign body in respiratory tract [None]
  - Scratch [None]

NARRATIVE: CASE EVENT DATE: 20180707
